FAERS Safety Report 7558829-7 (Version None)
Quarter: 2011Q2

REPORT INFORMATION
  Report Type: 
  Country: None (occurrence: None)
  Receive Date: 20110621
  Receipt Date: 20110607
  Transmission Date: 20111010
  Serious: Yes (Hospitalization)
  Sender: FDA-Public Use
  Company Number: US-ROCHE-783212

PATIENT
  Age: 56 Year
  Sex: Female

DRUGS (3)
  1. BEVACIZUMAB [Suspect]
     Indication: ENDOMETRIAL CANCER
     Dosage: INTRAVENOUS OVER30-90 MIN ON DAY ONE
     Route: 042
     Dates: start: 20100805
  2. CARBOPLATIN [Suspect]
     Indication: ENDOMETRIAL CANCER
     Dosage: AUC=6 INTRAVENOUS OVER 30 MIN ON DAY ONE X 6 CYCLES
     Route: 042
     Dates: start: 20100805
  3. PACLITAXEL [Suspect]
     Indication: ENDOMETRIAL CANCER
     Dosage: INTRAVENOUS OVER THREE HOURS ON DAY ONE X 6 CYCLES
     Route: 042
     Dates: start: 20100805

REACTIONS (6)
  - HAEMOGLOBIN DECREASED [None]
  - BLOOD GLUCOSE INCREASED [None]
  - FATIGUE [None]
  - BLOOD PHOSPHORUS DECREASED [None]
  - PYREXIA [None]
  - DEVICE RELATED INFECTION [None]
